FAERS Safety Report 4469984-X (Version None)
Quarter: 2004Q3

REPORT INFORMATION
  Report Type: 
  Country: None (occurrence: None)
  Receive Date: 20040915
  Receipt Date: 20040722
  Transmission Date: 20050211
  Serious: Yes (Other)
  Sender: FDA-Public Use
  Company Number: PHEH2004US08024

PATIENT
  Age: 55 Year
  Sex: Female
  Weight: 49.4 kg

DRUGS (18)
  1. MYFORTIC [Suspect]
     Indication: RENAL TRANSPLANT
     Dosage: 360 MG, BID, ORAL; 720 MG, BID, ORAL
     Route: 050
  2. PROGRAF [Concomitant]
  3. PREDNISONE [Concomitant]
  4. PROPRANOLOL [Concomitant]
  5. CAPTOPRIL [Concomitant]
  6. ZAROXOLYN [Concomitant]
  7. LASIX [Concomitant]
  8. RETINOL [Concomitant]
  9. LIPITOR [Concomitant]
  10. PAXIL [Concomitant]
  11. FOSAMAX [Concomitant]
  12. RESTORIL [Concomitant]
  13. INSULIN, REGULAR (INSULIN) [Concomitant]
  14. NPH INSULIN [Concomitant]
  15. K-DUR 10 [Concomitant]
  16. AMARYL [Concomitant]
  17. ZETIA [Concomitant]
  18. AVANDIA [Concomitant]

REACTIONS (1)
  - BLOOD GLUCOSE INCREASED [None]
